FAERS Safety Report 6888082-9 (Version None)
Quarter: 2010Q3

REPORT INFORMATION
  Report Type: 
  Country: None (occurrence: None)
  Receive Date: 20100730
  Receipt Date: 20100721
  Transmission Date: 20110219
  Serious: Yes (Death)
  Sender: FDA-Public Use
  Company Number: JP-PFIZER INC-2010090830

PATIENT
  Sex: Female
  Weight: 0.597 kg

DRUGS (4)
  1. HYDROCORTISONE SODIUM SUCCINATE [Suspect]
     Indication: ADRENAL INSUFFICIENCY
     Dosage: UNK
  2. HYDROCORTISONE SODIUM SUCCINATE [Suspect]
     Indication: CARDIAC FAILURE
     Dosage: 2 MG/KG, 2X/DAY
  3. HYDROCORTISONE SODIUM SUCCINATE [Suspect]
     Dosage: 15 MG/KG, UNK
     Route: 041
  4. HYDROCORTISONE SODIUM SUCCINATE [Suspect]
     Dosage: 20 MG/KG DAILY

REACTIONS (4)
  - CARDIAC HYPERTROPHY [None]
  - PNEUMONIA [None]
  - RESPIRATORY FAILURE [None]
  - STAPHYLOCOCCAL SEPSIS [None]
